FAERS Safety Report 9282083 (Version 1)
Quarter: 2013Q2

REPORT INFORMATION
  Report Type: Spontaneous
  Country: US (occurrence: None)
  Receive Date: 20130508
  Receipt Date: 20130508
  Transmission Date: 20140414
  Serious: Yes (Other)
  Sender: FDA-Public Use
  Company Number: None

PATIENT
  Age: 56 Year
  Sex: Male
  Weight: 102 kg

DRUGS (6)
  1. DABIGATRAN [Suspect]
     Indication: ATRIAL FIBRILLATION
     Dosage: 150MG  Q12HOURS  PO?3/12/11 - (APPROX 4/2011)
     Route: 048
     Dates: start: 20110312, end: 201104
  2. SOTALOL [Concomitant]
  3. DILTIAZEM [Concomitant]
  4. AMLODIPINE [Concomitant]
  5. BENAZEPRIL [Concomitant]
  6. ASPIRIN [Concomitant]

REACTIONS (2)
  - Palpitations [None]
  - Chromaturia [None]
